FAERS Safety Report 21212541 (Version 1)
Quarter: 2022Q3

REPORT INFORMATION
  Report Type: Spontaneous
  Country: US (occurrence: None)
  Receive Date: 20220814
  Receipt Date: 20220814
  Transmission Date: 20221027
  Serious: Yes (Disabling)
  Sender: FDA-Public Use
  Company Number: None

PATIENT
  Age: 26 Year
  Sex: Female
  Weight: 69 kg

DRUGS (1)
  1. AZITHROMYCIN [Suspect]
     Active Substance: AZITHROMYCIN
     Indication: Mycobacterium avium complex infection
     Dosage: FREQUENCY : DAILY;?
     Route: 048
     Dates: start: 20220114, end: 20220531

REACTIONS (5)
  - Deafness [None]
  - Ototoxicity [None]
  - Decreased appetite [None]
  - Asthenia [None]
  - Guillain-Barre syndrome [None]

NARRATIVE: CASE EVENT DATE: 20220531
